FAERS Safety Report 6979632-2 (Version None)
Quarter: 2010Q3

REPORT INFORMATION
  Report Type: 
  Country: None (occurrence: None)
  Receive Date: 20100910
  Receipt Date: 20100910
  Transmission Date: 20110219
  Serious: Yes (Other)
  Sender: FDA-Public Use
  Company Number: None

PATIENT
  Age: 75 Year
  Sex: Male
  Weight: 111.1313 kg

DRUGS (1)
  1. LEVAQUIN [Suspect]
     Indication: ASTHMA
     Dosage: 1 TABLET ONCE DAILY PO
     Route: 048
     Dates: start: 20100716, end: 20100717

REACTIONS (4)
  - DRUG HYPERSENSITIVITY [None]
  - GAIT DISTURBANCE [None]
  - TENDON DISORDER [None]
  - WALKING AID USER [None]
